FAERS Safety Report 4721033-1 (Version None)
Quarter: 2005Q3

REPORT INFORMATION
  Report Type: 
  Country: None (occurrence: None)
  Receive Date: 20050719
  Receipt Date: 20041029
  Transmission Date: 20060218
  Serious: Yes (Other)
  Sender: FDA-Public Use
  Company Number: 2004242390US

PATIENT
  Age: 51 Year
  Sex: Female
  Weight: 81.6 kg

DRUGS (5)
  1. CELEBREX [Suspect]
     Indication: ARTHRALGIA
     Dosage: 200 MG, QD, ORAL
     Route: 048
     Dates: start: 20020101
  2. ALTACE [Concomitant]
  3. PREMARIN (ESTROBEN CONJUGATED) [Concomitant]
  4. PROZAC [Concomitant]
  5. CHOLESTYRAMINE [Concomitant]

REACTIONS (1)
  - PANCREATITIS [None]
